FAERS Safety Report 21045314 (Version 5)
Quarter: 2023Q1

REPORT INFORMATION
  Report Type: Spontaneous
  Country: ES (occurrence: ES)
  Receive Date: 20220706
  Receipt Date: 20230113
  Transmission Date: 20230418
  Serious: Yes (Hospitalization, Other)
  Sender: FDA-Public Use
  Company Number: ES-SUN PHARMACEUTICAL INDUSTRIES LTD-2022R1-342747

PATIENT
  Age: 13 Year
  Sex: Female

DRUGS (3)
  1. MORPHINE [Suspect]
     Active Substance: MORPHINE
     Indication: Suicidal ideation
     Dosage: 300 MILLIGRAM, DELAYED-RELEASE
     Route: 048
  2. DULOXETINE [Suspect]
     Active Substance: DULOXETINE
     Indication: Product used for unknown indication
     Dosage: UNK,600 MG
     Route: 048
  3. TRAMADOL [Suspect]
     Active Substance: TRAMADOL
     Indication: Suicidal ideation
     Dosage: UNK
     Route: 048

REACTIONS (15)
  - Intentional overdose [Unknown]
  - Hyperamylasaemia [Recovered/Resolved]
  - Troponin I increased [Recovered/Resolved]
  - Suicide attempt [Recovered/Resolved]
  - Bradyphrenia [Recovered/Resolved]
  - Miosis [Recovered/Resolved]
  - Leukocytosis [Recovered/Resolved]
  - Abdominal pain lower [Recovered/Resolved]
  - Depressed level of consciousness [Recovered/Resolved]
  - Hyporesponsive to stimuli [Recovered/Resolved]
  - Respiratory distress [Recovered/Resolved]
  - Urinary retention [Recovered/Resolved]
  - Vomiting [Recovered/Resolved]
  - Headache [Recovered/Resolved]
  - Somnolence [Recovered/Resolved]
